FAERS Safety Report 5385594-4 (Version None)
Quarter: 2007Q3

REPORT INFORMATION
  Report Type: 
  Country: None (occurrence: None)
  Receive Date: 20070712
  Receipt Date: 20070702
  Transmission Date: 20080115
  Serious: No
  Sender: FDA-Public Use
  Company Number: US-BAXTER-2007BH006026

PATIENT
  Age: 4 Year
  Sex: Male

DRUGS (5)
  1. MIDAZOLAM HYDROCHLORIDE [Suspect]
     Indication: SEDATION
     Route: 042
  2. MIDAZOLAM HYDROCHLORIDE [Suspect]
  3. FENTANYL CITRATE [Suspect]
     Indication: SEDATION
     Route: 042
  4. MORPHINE SULFATE [Suspect]
     Indication: SEDATION
     Route: 042
  5. CHLOROHYDRATE [Suspect]
     Indication: DRUG USE FOR UNKNOWN INDICATION
     Dosage: DOSE UNIT:UNKNOWN
     Route: 065

REACTIONS (2)
  - DRUG WITHDRAWAL SYNDROME [None]
  - DYSKINESIA [None]
